FAERS Safety Report 4886506-X (Version None)
Quarter: 2006Q1

REPORT INFORMATION
  Report Type: 
  Country: None (occurrence: None)
  Receive Date: 20060120
  Receipt Date: 20060105
  Transmission Date: 20060701
  Serious: Yes (Other)
  Sender: FDA-Public Use
  Company Number: GBWYE278705JAN06

PATIENT
  Sex: Female

DRUGS (2)
  1. ENBREL [Suspect]
     Indication: RHEUMATOID ARTHRITIS
     Dosage: UNKNOWN
     Dates: start: 20040712, end: 20041101
  2. PREDNISOLONE [Concomitant]
     Dosage: 3MG FREQUENCY UNKNOWN

REACTIONS (2)
  - BASAL CELL CARCINOMA [None]
  - ECZEMA [None]
